FAERS Safety Report 17296696 (Version 3)
Quarter: 2020Q3

REPORT INFORMATION
  Report Type: Report from Study
  Country: US (occurrence: US)
  Receive Date: 20200121
  Receipt Date: 20200706
  Transmission Date: 20201102
  Serious: Yes (Other)
  Sender: FDA-Public Use
  Company Number: US-ACTELION-A-NJ2020-200580

PATIENT
  Sex: Female
  Weight: 93.88 kg

DRUGS (3)
  1. AMLODIPINE [Concomitant]
     Active Substance: AMLODIPINE BESYLATE
  2. OPSUMIT [Concomitant]
     Active Substance: MACITENTAN
     Indication: PULMONARY ARTERIAL HYPERTENSION
  3. UPTRAVI [Suspect]
     Active Substance: SELEXIPAG
     Indication: PULMONARY ARTERIAL HYPERTENSION
     Dosage: 200 MCG, BID
     Route: 048
     Dates: end: 20200622

REACTIONS (8)
  - Chemotherapy [Unknown]
  - Gait disturbance [Unknown]
  - Fluid retention [Unknown]
  - Dyspnoea [Unknown]
  - Alopecia [Unknown]
  - Rash [Unknown]
  - Heart rate decreased [Unknown]
  - Heart rate increased [Unknown]
